FAERS Safety Report 8229613-6 (Version None)
Quarter: 2012Q1

REPORT INFORMATION
  Report Type: 
  Country: None (occurrence: None)
  Receive Date: 20120322
  Receipt Date: 20120314
  Transmission Date: 20120608
  Serious: Yes (Hospitalization)
  Sender: FDA-Public Use
  Company Number: PHHY2010FR32868

PATIENT
  Sex: Male

DRUGS (9)
  1. ACTOS [Concomitant]
     Dosage: UNK
  2. ATENOLOL [Concomitant]
  3. AMARYL [Suspect]
     Indication: TYPE 2 DIABETES MELLITUS
  4. ATORVASTATIN [Concomitant]
  5. IMATINIB MESYLATE [Suspect]
     Indication: CHRONIC MYELOID LEUKAEMIA
     Dosage: 400 MG
     Dates: start: 20051022, end: 20091020
  6. ZOFENIL [Concomitant]
  7. ESIDRIX [Concomitant]
     Dosage: UNK %, UNK
  8. IMODIUM [Concomitant]
     Dosage: UNK
  9. PLAVIX [Concomitant]

REACTIONS (12)
  - PYREXIA [None]
  - COUGH [None]
  - BRONCHOPNEUMOPATHY [None]
  - INFLAMMATION [None]
  - CITROBACTER TEST POSITIVE [None]
  - RENAL FAILURE [None]
  - BACILLUS TEST POSITIVE [None]
  - ANAEMIA [None]
  - BLOOD GLUCOSE INCREASED [None]
  - PRODUCTIVE COUGH [None]
  - RALES [None]
  - CHOLESTASIS [None]
